FAERS Safety Report 10247072 (Version 2)
Quarter: 2014Q3

REPORT INFORMATION
  Report Type: Report from Study
  Country: GB (occurrence: GB)
  Receive Date: 20140619
  Receipt Date: 20140918
  Transmission Date: 20150326
  Serious: Yes (Death, Hospitalization)
  Sender: FDA-Public Use
  Company Number: GB-GLAXOSMITHKLINE-B0959382D

PATIENT
  Age: 75 Year
  Sex: Female

DRUGS (11)
  1. VINCRISTINE [Suspect]
     Active Substance: VINCRISTINE
     Indication: RICHTER^S SYNDROME
     Dosage: 1.4MG CYCLIC
     Route: 042
     Dates: start: 20140102
  2. DOXORUBICIN [Suspect]
     Active Substance: DOXORUBICIN
     Indication: RICHTER^S SYNDROME
     Dosage: 50MG CYCLIC
     Route: 042
     Dates: start: 20140102
  3. OFATUMUMAB [Suspect]
     Active Substance: OFATUMUMAB
     Indication: RICHTER^S SYNDROME
     Dosage: 1000MG CYCLIC
     Route: 042
     Dates: start: 20140102
  4. CYCLIZINE [Concomitant]
     Active Substance: CYCLIZINE
     Indication: ANTIALLERGIC THERAPY
     Dosage: 50MG THREE TIMES PER DAY
     Route: 048
  5. PREDNISOLONE. [Suspect]
     Active Substance: PREDNISOLONE
     Indication: RICHTER^S SYNDROME
     Dosage: 60MG CYCLIC
     Route: 048
     Dates: start: 20140102
  6. SUPPLEMENT [Concomitant]
     Active Substance: UNSPECIFIED INGREDIENT
     Indication: DECREASED APPETITE
     Route: 048
  7. CYCLOPHOSPHAMIDE. [Suspect]
     Active Substance: CYCLOPHOSPHAMIDE
     Indication: RICHTER^S SYNDROME
     Dosage: 750MG CYCLIC
     Route: 042
     Dates: start: 20140102
  8. TINZAPARIN [Concomitant]
     Active Substance: TINZAPARIN
     Indication: COAGULOPATHY
     Dosage: 4500UNIT PER DAY
     Route: 058
  9. ACICLOVIR [Concomitant]
     Active Substance: ACYCLOVIR
     Indication: ANTIVIRAL TREATMENT
     Dosage: 200MG THREE TIMES PER DAY
     Route: 048
  10. FILGASTRIM [Concomitant]
     Active Substance: FILGRASTIM
     Indication: NEUTROPENIA
     Dosage: 300MCG PER DAY
     Route: 058
     Dates: start: 20140604
  11. METOCLOPRAMIDE. [Concomitant]
     Active Substance: METOCLOPRAMIDE
     Indication: NAUSEA
     Dosage: 10MG PER DAY
     Route: 048

REACTIONS (1)
  - Neutropenic sepsis [Fatal]

NARRATIVE: CASE EVENT DATE: 20140605
